FAERS Safety Report 4806448-5 (Version None)
Quarter: 2005Q4

REPORT INFORMATION
  Report Type: 
  Country: None (occurrence: None)
  Receive Date: 20051019
  Receipt Date: 20051013
  Transmission Date: 20060501
  Serious: Yes (Life-Threatening, Other)
  Sender: FDA-Public Use
  Company Number: 2005-02124

PATIENT
  Age: 64 Year
  Sex: Male
  Weight: 91.7 kg

DRUGS (3)
  1. VELCADE [Suspect]
     Indication: HEPATIC NEOPLASM MALIGNANT
     Dosage: 1.30 MG/M2, 2/WEEK, IV BOLUS
     Route: 040
     Dates: start: 20050913, end: 20050923
  2. GLYBURIDE [Suspect]
  3. METFORMIN HCL [Suspect]

REACTIONS (3)
  - COGNITIVE DISORDER [None]
  - HYPOGLYCAEMIA [None]
  - TREATMENT NONCOMPLIANCE [None]
